FAERS Safety Report 4737941-1 (Version None)
Quarter: 2005Q3

REPORT INFORMATION
  Report Type: 
  Country: None (occurrence: None)
  Receive Date: 20050805
  Receipt Date: 20050805
  Transmission Date: 20060218
  Serious: Yes (Other)
  Sender: FDA-Public Use
  Company Number: None

PATIENT
  Sex: Female
  Weight: 48.0813 kg

DRUGS (5)
  1. FOSAMAX [Suspect]
     Indication: OSTEOPOROSIS
     Dosage: 70 MG 1 PO
     Route: 048
     Dates: start: 20050506, end: 20050506
  2. GLUCOPHAGE [Concomitant]
  3. PRANDIN [Concomitant]
  4. LIPITOR [Concomitant]
  5. ASPIRIN [Concomitant]

REACTIONS (3)
  - ANOREXIA [None]
  - PAIN [None]
  - PYREXIA [None]
